FAERS Safety Report 7567913-3 (Version None)
Quarter: 2011Q2

REPORT INFORMATION
  Report Type: 
  Country: None (occurrence: None)
  Receive Date: 20110616
  Receipt Date: 20110601
  Transmission Date: 20111010
  Serious: Yes (Life-Threatening, Other)
  Sender: FDA-Public Use
  Company Number: AUR-APL-2011-02757

PATIENT
  Age: 74 Year
  Sex: Female

DRUGS (5)
  1. ASPIRIN [Suspect]
     Indication: PERICARDITIS
  2. ATENOLOL [Suspect]
     Indication: PERICARDITIS
  3. CLOPIDOGREL [Suspect]
     Indication: PERICARDITIS
  4. TENECTOPLASE [Suspect]
     Indication: PERICARDITIS
  5. HEPARIN [Suspect]
     Indication: PERICARDITIS

REACTIONS (10)
  - PERICARDIAL HAEMORRHAGE [None]
  - HYPOTENSION [None]
  - PLEURAL EFFUSION [None]
  - PNEUMONIA [None]
  - CARDIAC TAMPONADE [None]
  - CARDIAC ARREST [None]
  - PERICARDITIS [None]
  - TACHYCARDIA [None]
  - PULSELESS ELECTRICAL ACTIVITY [None]
  - ANURIA [None]
